FAERS Safety Report 8004651-7 (Version None)
Quarter: 2011Q4

REPORT INFORMATION
  Report Type: 
  Country: None (occurrence: None)
  Receive Date: 20111223
  Receipt Date: 20111213
  Transmission Date: 20120403
  Serious: Yes (Hospitalization)
  Sender: FDA-Public Use
  Company Number: US-JNJFOC-20111206115

PATIENT
  Sex: Female
  Weight: 107.5 kg

DRUGS (7)
  1. ALLEGRA [Concomitant]
     Indication: MULTIPLE ALLERGIES
     Dosage: AS NEEDED
     Route: 048
  2. REMICADE [Suspect]
     Indication: RHEUMATOID ARTHRITIS
     Route: 042
  3. FOLIC ACID [Concomitant]
     Indication: RHEUMATOID ARTHRITIS
     Route: 048
     Dates: start: 20020101
  4. BENADRYL [Concomitant]
     Indication: PREMEDICATION
     Route: 065
  5. METHOTREXATE [Concomitant]
     Indication: RHEUMATOID ARTHRITIS
     Dosage: DOSE STRENGTH: 2.5MG
     Route: 048
     Dates: start: 20020101
  6. PROVENTIL HFA INHALANT [Concomitant]
     Indication: ASTHMA
     Route: 055
  7. REMICADE [Suspect]
     Route: 042
     Dates: start: 20030312, end: 20110901

REACTIONS (12)
  - BLOOD CHOLESTEROL INCREASED [None]
  - TOOTH ABSCESS [None]
  - LOWER RESPIRATORY TRACT INFECTION [None]
  - PULMONARY EMBOLISM [None]
  - DRY EYE [None]
  - RESPIRATORY DISORDER [None]
  - INFUSION SITE PAIN [None]
  - INFUSION RELATED REACTION [None]
  - HYPOTHYROIDISM [None]
  - RESPIRATORY TRACT INFECTION [None]
  - MALAISE [None]
  - RHEUMATOID ARTHRITIS [None]
